FAERS Safety Report 25684898 (Version 1)
Quarter: 2025Q3

REPORT INFORMATION
  Report Type: Spontaneous
  Country: JP (occurrence: JP)
  Receive Date: 20250815
  Receipt Date: 20250815
  Transmission Date: 20251020
  Serious: Yes (Other)
  Sender: ASTELLAS
  Company Number: JP-ASTELLAS-2025-AER-044272

PATIENT
  Sex: Male

DRUGS (5)
  1. MIRABEGRON [Suspect]
     Active Substance: MIRABEGRON
     Indication: Benign prostatic hyperplasia
     Route: 048
  2. VIBEGRON [Suspect]
     Active Substance: VIBEGRON
     Indication: Benign prostatic hyperplasia
     Route: 048
  3. VIBEGRON [Suspect]
     Active Substance: VIBEGRON
     Indication: Bladder disorder
  4. HARNAL [Concomitant]
     Active Substance: TAMSULOSIN HYDROCHLORIDE
     Indication: Benign prostatic hyperplasia
     Route: 048
  5. LOSARTAN [Concomitant]
     Active Substance: LOSARTAN
     Indication: Product used for unknown indication
     Route: 048

REACTIONS (9)
  - Prostate cancer [Recovered/Resolved]
  - Atrial fibrillation [Recovered/Resolved]
  - Glaucoma [Unknown]
  - Intraocular pressure fluctuation [Unknown]
  - Nocturia [Not Recovered/Not Resolved]
  - Bladder disorder [Unknown]
  - Somatic dysfunction [Unknown]
  - Thirst [Unknown]
  - Off label use [Unknown]
